FAERS Safety Report 23750349 (Version 1)
Quarter: 2024Q2

REPORT INFORMATION
  Report Type: Report from Study
  Country: IE (occurrence: IE)
  Receive Date: 20240417
  Receipt Date: 20240417
  Transmission Date: 20240716
  Serious: Yes (Other)
  Sender: FDA-Public Use
  Company Number: IE-002147023-NVSC2024IE080685

PATIENT
  Sex: Female

DRUGS (1)
  1. KESIMPTA [Suspect]
     Active Substance: OFATUMUMAB
     Indication: Relapsing-remitting multiple sclerosis
     Dosage: 20 MG, QW (FOR WEEKS 0,1,2 AND 4. THEN ONCE MONTHLY)
     Route: 058
     Dates: start: 20230619

REACTIONS (3)
  - Lower respiratory tract infection [Unknown]
  - Influenza like illness [Unknown]
  - Headache [Unknown]
